FAERS Safety Report 4525142-1 (Version None)
Quarter: 2005Q1

REPORT INFORMATION
  Report Type: 
  Country: None (occurrence: None)
  Receive Date: 20041116
  Receipt Date: 20040716
  Transmission Date: 20050727
  Serious: No
  Sender: FDA-Public Use
  Company Number: S04-USA-04884-01

PATIENT
  Age: 94 Year
  Sex: Female

DRUGS (10)
  1. NAMENDA [Suspect]
     Indication: DEMENTIA ALZHEIMER'S TYPE
     Dosage: 5 MG QD PO
     Route: 048
  2. NAMENDA [Suspect]
     Indication: DEMENTIA ALZHEIMER'S TYPE
     Dosage: 10 MG QD PO
     Route: 048
  3. NAMENDA [Suspect]
     Indication: DEMENTIA ALZHEIMER'S TYPE
     Dosage: 15 MG QD PO
     Route: 048
  4. NAMENDA [Suspect]
     Indication: DEMENTIA ALZHEIMER'S TYPE
     Dosage: 10 MG BID PO
     Route: 048
  5. ATENOLOL [Concomitant]
  6. LISINOPRIL [Concomitant]
  7. EXELON [Concomitant]
  8. CALCIUM [Concomitant]
  9. PLAVIX [Concomitant]
  10. MULTI-VITAMIN [Concomitant]

REACTIONS (1)
  - LIBIDO INCREASED [None]
